FAERS Safety Report 6515323-X (Version None)
Quarter: 2009Q4

REPORT INFORMATION
  Report Type: 
  Country: None (occurrence: None)
  Receive Date: 20091223
  Receipt Date: 20091203
  Transmission Date: 20100525
  Serious: No
  Sender: FDA-Public Use
  Company Number: US-ROCHE-673123

PATIENT
  Age: 2 Year
  Sex: Male

DRUGS (1)
  1. TAMIFLU [Suspect]
     Indication: DRUG USE FOR UNKNOWN INDICATION
     Dosage: STRENGTH: 15MG/ML, FORM: COMPOUNDED SUSPENSION
     Route: 048
     Dates: start: 20091202

REACTIONS (2)
  - NO ADVERSE EVENT [None]
  - OVERDOSE [None]
